FAERS Safety Report 5894086-5 (Version None)
Quarter: 2008Q3

REPORT INFORMATION
  Report Type: 
  Country: None (occurrence: None)
  Receive Date: 20080923
  Receipt Date: 20071217
  Transmission Date: 20090109
  Serious: No
  Sender: FDA-Public Use
  Company Number: US-ASTRAZENECA-2007UW28585

PATIENT
  Sex: Female

DRUGS (5)
  1. SEROQUEL [Suspect]
     Indication: ANXIETY
     Route: 048
     Dates: start: 20070601
  2. SEROQUEL [Suspect]
     Indication: SLEEP DISORDER
     Route: 048
     Dates: start: 20070601
  3. SEROQUEL [Suspect]
     Route: 048
     Dates: start: 20071101
  4. SEROQUEL [Suspect]
     Route: 048
     Dates: start: 20071101
  5. LAMICTAL [Concomitant]

REACTIONS (7)
  - HALLUCINATION [None]
  - ILL-DEFINED DISORDER [None]
  - INSOMNIA [None]
  - MEMORY IMPAIRMENT [None]
  - NARCOLEPSY [None]
  - SLEEP DISORDER [None]
  - SOMNOLENCE [None]
